FAERS Safety Report 9458445 (Version 2)
Quarter: 2013Q4

REPORT INFORMATION
  Report Type: Spontaneous
  Country: US (occurrence: US)
  Receive Date: 20130814
  Receipt Date: 20131213
  Transmission Date: 20140711
  Serious: No
  Sender: FDA-Public Use
  Company Number: US-PFIZER INC-2013235287

PATIENT
  Age: 72 Year
  Sex: Female

DRUGS (9)
  1. LIPITOR [Suspect]
     Dosage: UNK
  2. MORPHINE SULFATE [Suspect]
     Dosage: UNK
  3. ANSAID [Suspect]
     Dosage: UNK
  4. CIPROFLOXACIN [Suspect]
     Dosage: UNK
  5. ASA [Suspect]
     Dosage: UNK
  6. LESCOL [Suspect]
     Dosage: UNK
  7. IODINE [Suspect]
     Dosage: UNK
  8. DILAUDID [Suspect]
     Dosage: UNK
  9. BABY ASPIRIN [Suspect]
     Dosage: UNK

REACTIONS (1)
  - Drug hypersensitivity [Unknown]
